FAERS Safety Report 6243122-5 (Version None)
Quarter: 2009Q2

REPORT INFORMATION
  Report Type: 
  Country: None (occurrence: None)
  Receive Date: 20090622
  Receipt Date: 20090622
  Transmission Date: 20091009
  Serious: Yes (Other)
  Sender: FDA-Public Use
  Company Number: None

PATIENT
  Age: 49 Year
  Sex: Female
  Weight: 77.1115 kg

DRUGS (1)
  1. THYROID TAB [Suspect]
     Indication: HYPOTHYROIDISM
     Dosage: 90MG 2X/DAILY SL
     Route: 060
     Dates: start: 20070601, end: 20090619

REACTIONS (5)
  - DISEASE RECURRENCE [None]
  - DRY EYE [None]
  - DRY SKIN [None]
  - FATIGUE [None]
  - HYPOTHYROIDISM [None]
